FAERS Safety Report 9100485 (Version 2)
Quarter: 2013Q2

REPORT INFORMATION
  Report Type: Spontaneous
  Country: DE (occurrence: DE)
  Receive Date: 20130215
  Receipt Date: 20130402
  Transmission Date: 20140414
  Serious: Yes (Other)
  Sender: FDA-Public Use
  Company Number: DE-PFIZER INC-2013057740

PATIENT
  Age: 93 Year
  Sex: Female
  Weight: 75 kg

DRUGS (4)
  1. PANTOZOL [Suspect]
     Dosage: 40 MG (ONCE)
     Route: 048
  2. GABAPENTIN [Suspect]
     Dosage: 200 MG (ONCE)
     Route: 048
  3. QUENSYL [Suspect]
     Dosage: 200 MG (ONCE)
     Route: 048
  4. AMITRIPTYLINE [Suspect]
     Dosage: 25 MG (ONCE)
     Route: 048

REACTIONS (5)
  - Drug administration error [Unknown]
  - Oxygen saturation decreased [Recovering/Resolving]
  - Hypotension [Recovered/Resolved]
  - Hyperhidrosis [Recovering/Resolving]
  - Ataxia [Recovered/Resolved]
